FAERS Safety Report 9832042 (Version 1)
Quarter: 2014Q1

REPORT INFORMATION
  Report Type: Spontaneous
  Country: AU (occurrence: AU)
  Receive Date: 20140121
  Receipt Date: 20140121
  Transmission Date: 20141002
  Serious: Yes (Other)
  Sender: FDA-Public Use
  Company Number: PHHY2014AU006572

PATIENT
  Sex: Female

DRUGS (7)
  1. GALVUS [Suspect]
     Dosage: UNK UKN, UNK
  2. EXFORGE [Suspect]
     Dosage: UNK UKN, UNK
  3. METFORMIN HYDROCHLORIDE SANDOZ [Suspect]
     Dosage: UNK UKN, UNK
  4. ATENOLOL [Suspect]
     Dosage: UNK UKN, UNK
  5. JANUMET [Suspect]
     Dosage: UNK UKN, UNK
  6. LIPITOR [Suspect]
     Dosage: UNK UKN, UNK
  7. NORVASC [Suspect]
     Dosage: UNK UKN, UNK

REACTIONS (2)
  - Renal failure acute [Unknown]
  - Medication error [Unknown]
